FAERS Safety Report 11299330 (Version 1)
Quarter: 2015Q3

REPORT INFORMATION
  Report Type: Spontaneous
  Country: US (occurrence: US)
  Receive Date: 20150722
  Receipt Date: 20150722
  Transmission Date: 20151125
  Serious: No
  Sender: FDA-Public Use
  Company Number: US-ELI_LILLY_AND_COMPANY-US201111007295

PATIENT
  Age: 16 Year
  Sex: Male

DRUGS (5)
  1. HUMATROPE [Suspect]
     Active Substance: SOMATROPIN
     Indication: GROWTH RETARDATION
     Dosage: 4.6 MG, QD
     Dates: start: 201109, end: 201112
  2. CENTRUM [Concomitant]
     Active Substance: VITAMINS
     Dosage: UNK, QD
  3. HUMATROPE [Suspect]
     Active Substance: SOMATROPIN
     Dosage: 5.4 MG, UNK
  4. ARIMIDEX [Concomitant]
     Active Substance: ANASTROZOLE
     Dosage: 1 MG, QD
  5. HUMATROPE [Suspect]
     Active Substance: SOMATROPIN
     Dosage: 5 MG, UNK
     Dates: start: 201112, end: 201201

REACTIONS (3)
  - Arthralgia [Recovered/Resolved]
  - Injection site pain [Unknown]
  - Influenza [Unknown]

NARRATIVE: CASE EVENT DATE: 201201
